FAERS Safety Report 14887445 (Version 2)
Quarter: 2018Q2

REPORT INFORMATION
  Report Type: Spontaneous
  Country: US (occurrence: US)
  Receive Date: 20180513
  Receipt Date: 20180623
  Transmission Date: 20180711
  Serious: No
  Sender: FDA-Public Use
  Company Number: US-JNJFOC-20180427226

PATIENT
  Age: 37 Year
  Sex: Female
  Weight: 61.24 kg

DRUGS (6)
  1. VITAMIN D [Concomitant]
     Active Substance: CHOLECALCIFEROL
     Indication: ROUTINE HEALTH MAINTENANCE
     Route: 065
  2. ROGAINE [Suspect]
     Active Substance: MINOXIDIL
     Route: 061
  3. ROGAINE [Suspect]
     Active Substance: MINOXIDIL
     Indication: PRODUCT USED FOR UNKNOWN INDICATION
     Dosage: QUARTER SIZE AMOUNT
     Route: 061
  4. VITAMIN C [Concomitant]
     Active Substance: ASCORBIC ACID
     Indication: ROUTINE HEALTH MAINTENANCE
     Route: 065
  5. NIZORAL A-D [Suspect]
     Active Substance: KETOCONAZOLE
     Indication: DANDRUFF
     Dosage: QUARTER SIZE AMOUNT
     Route: 061
  6. BIOTIN [Concomitant]
     Active Substance: BIOTIN
     Indication: HAIR GROWTH ABNORMAL
     Route: 065

REACTIONS (1)
  - Pruritus [Recovering/Resolving]
